FAERS Safety Report 13224840 (Version 1)
Quarter: 2017Q1

REPORT INFORMATION
  Report Type: Spontaneous
  Country: US (occurrence: US)
  Receive Date: 20170213
  Receipt Date: 20170213
  Transmission Date: 20170428
  Serious: No
  Sender: FDA-Public Use
  Company Number: US-009507513-1702USA005035

PATIENT
  Age: 43 Year
  Sex: Male

DRUGS (11)
  1. ZEPATIER [Suspect]
     Active Substance: ELBASVIR\GRAZOPREVIR
     Indication: END STAGE RENAL DISEASE
     Dosage: 50-100MG/ TAKE 1 TABLET EVERY DAY
     Route: 048
     Dates: start: 201611, end: 201702
  2. HYDRALAZINE [Concomitant]
     Active Substance: HYDRALAZINE HYDROCHLORIDE
     Route: 048
  3. ILEVRO [Concomitant]
     Active Substance: NEPAFENAC
  4. GLUCAGON. [Concomitant]
     Active Substance: GLUCAGON
  5. MINOXIDIL. [Concomitant]
     Active Substance: MINOXIDIL
     Route: 048
  6. CARVEDILOL. [Concomitant]
     Active Substance: CARVEDILOL
     Route: 048
  7. CLONIDINE. [Concomitant]
     Active Substance: CLONIDINE
     Route: 048
  8. VIGAMOX [Concomitant]
     Active Substance: MOXIFLOXACIN HYDROCHLORIDE
  9. PRINIVIL [Suspect]
     Active Substance: LISINOPRIL
     Route: 048
  10. ESCITALOPRAM [Concomitant]
     Active Substance: ESCITALOPRAM OXALATE
     Route: 048
  11. PREDNISOLONE. [Suspect]
     Active Substance: PREDNISOLONE

REACTIONS (2)
  - Poor quality sleep [Not Recovered/Not Resolved]
  - Product use issue [Unknown]

NARRATIVE: CASE EVENT DATE: 201611
